FAERS Safety Report 13649582 (Version 1)
Quarter: 2017Q2

REPORT INFORMATION
  Report Type: Spontaneous
  Country: US (occurrence: US)
  Receive Date: 20170614
  Receipt Date: 20170614
  Transmission Date: 20170830
  Serious: Yes (Life-Threatening, Hospitalization, Other)
  Sender: FDA-Public Use
  Company Number: US-MACLEODS PHARMACEUTICALS US LTD-MAC2017005155

PATIENT

DRUGS (3)
  1. TRAMADOL. [Suspect]
     Active Substance: TRAMADOL
     Indication: PRODUCT USED FOR UNKNOWN INDICATION
     Dosage: UNK
     Route: 065
  2. SERTRALINE [Concomitant]
     Active Substance: SERTRALINE HYDROCHLORIDE
     Indication: PRODUCT USED FOR UNKNOWN INDICATION
     Dosage: UNK
     Route: 065
  3. QUETIAPINE. [Concomitant]
     Active Substance: QUETIAPINE
     Indication: PRODUCT USED FOR UNKNOWN INDICATION
     Dosage: UNK
     Route: 065

REACTIONS (13)
  - Acute kidney injury [Recovering/Resolving]
  - Pyrexia [Recovered/Resolved]
  - Toxicity to various agents [Recovered/Resolved]
  - Pulse absent [Recovered/Resolved]
  - Hyperkalaemia [Recovered/Resolved]
  - Tachycardia [Recovered/Resolved]
  - Unresponsive to stimuli [Recovered/Resolved]
  - Apnoea [Recovered/Resolved]
  - Cardiac arrest [Recovered/Resolved]
  - Brugada syndrome [Recovered/Resolved]
  - Rhabdomyolysis [Recovered/Resolved]
  - Depressed level of consciousness [Recovered/Resolved]
  - Metabolic acidosis [Recovered/Resolved]
